FAERS Safety Report 6822332-X (Version None)
Quarter: 2010Q3

REPORT INFORMATION
  Report Type: 
  Country: None (occurrence: None)
  Receive Date: 20100707
  Receipt Date: 20100707
  Transmission Date: 20110219
  Serious: Yes (Life-Threatening, Hospitalization)
  Sender: FDA-Public Use
  Company Number: None

PATIENT
  Age: 29 Year
  Sex: Female
  Weight: 81.1939 kg

DRUGS (2)
  1. YAZ [Suspect]
     Indication: CONTRACEPTION
     Dosage: ONCE DAILY PO
     Route: 048
     Dates: start: 20091003, end: 20100110
  2. YAZ [Suspect]
     Indication: OVARIAN CYST
     Dosage: ONCE DAILY PO
     Route: 048
     Dates: start: 20091003, end: 20100110

REACTIONS (2)
  - DEEP VEIN THROMBOSIS [None]
  - PULMONARY EMBOLISM [None]
